FAERS Safety Report 5722918-X (Version None)
Quarter: 2008Q2

REPORT INFORMATION
  Report Type: 
  Country: None (occurrence: None)
  Receive Date: 20080425
  Receipt Date: 20080416
  Transmission Date: 20081010
  Serious: Yes (Hospitalization, Other)
  Sender: FDA-Public Use
  Company Number: 2007BI002617

PATIENT
  Age: 61 Year
  Sex: Female
  Weight: 52.6173 kg

DRUGS (7)
  1. AVONEX [Suspect]
     Indication: MULTIPLE SCLEROSIS
     Dosage: 30 UG; QW; IM
     Route: 030
     Dates: start: 20021101
  2. AMANTADINE HCL [Concomitant]
  3. PRILOSEC [Concomitant]
  4. GABAPENTIN [Concomitant]
  5. FLONASE [Concomitant]
  6. ATROVENT [Concomitant]
  7. WELLBUTRIN [Concomitant]

REACTIONS (12)
  - ANAEMIA POSTOPERATIVE [None]
  - CHOLELITHIASIS [None]
  - CYSTITIS [None]
  - DIABETES MELLITUS [None]
  - HYPERGLYCAEMIA [None]
  - HYPERTENSION [None]
  - INSOMNIA [None]
  - MUSCLE SPASMS [None]
  - NEUROGENIC BLADDER [None]
  - PANCREATITIS ACUTE [None]
  - RENAL DISORDER [None]
  - URINARY TRACT INFECTION [None]
